FAERS Safety Report 17522202 (Version 3)
Quarter: 2020Q2

REPORT INFORMATION
  Report Type: Spontaneous
  Country: US (occurrence: US)
  Receive Date: 20200310
  Receipt Date: 20200604
  Transmission Date: 20200713
  Serious: No
  Sender: FDA-Public Use
  Company Number: US-VERTEX PHARMACEUTICALS-2020-004453

PATIENT
  Age: 25 Year
  Sex: Male

DRUGS (34)
  1. LORATADINE. [Concomitant]
     Active Substance: LORATADINE
  2. ONDANSETRON [Concomitant]
     Active Substance: ONDANSETRON
  3. PHYTONADIONE. [Concomitant]
     Active Substance: PHYTONADIONE
  4. RANITIDINE. [Concomitant]
     Active Substance: RANITIDINE
  5. CHOLECALCIFEROL [Concomitant]
     Active Substance: CHOLECALCIFEROL
     Dosage: 5000 UNITS DAILY
  6. FLONASE [Concomitant]
     Active Substance: FLUTICASONE PROPIONATE
  7. ZENPEP [Concomitant]
     Active Substance: PANCRELIPASE AMYLASE\PANCRELIPASE LIPASE\PANCRELIPASE PROTEASE
     Dosage: 40,000 UNITS
  8. TRIKAFTA [Suspect]
     Active Substance: ELEXACAFTOR\IVACAFTOR\TEZACAFTOR
     Indication: CYSTIC FIBROSIS
     Dosage: 2 TABS (100MG ELEXACAFTOR/50MG TEZACAFTOR/75MG IVACAFTOR) IN AM AND 1 TAB (150MG IVACAFTOR) IN PM
     Route: 048
     Dates: start: 20191216
  9. BUPROPION. [Concomitant]
     Active Substance: BUPROPION
  10. PROAIR HFA [Concomitant]
     Active Substance: ALBUTEROL SULFATE
  11. PULMOZYME [Concomitant]
     Active Substance: DORNASE ALFA
  12. CIPROFLOXACIN. [Concomitant]
     Active Substance: CIPROFLOXACIN
  13. HYPERTONIC SALINE SOLUTION [Concomitant]
     Active Substance: SODIUM CHLORIDE
  14. TRIKAFTA [Suspect]
     Active Substance: ELEXACAFTOR\IVACAFTOR\TEZACAFTOR
     Dosage: 2 TABS (100MG ELEXACAFTOR/50MG TEZACAFTOR/75MG IVACAFTOR) IN AM
     Route: 048
  15. ALBUTEROL [SALBUTAMOL SULFATE] [Concomitant]
     Active Substance: ALBUTEROL SULFATE
  16. CREON [Concomitant]
     Active Substance: PANCRELIPASE AMYLASE\PANCRELIPASE LIPASE\PANCRELIPASE PROTEASE
  17. URSODIOL. [Concomitant]
     Active Substance: URSODIOL
  18. FUROSEMIDE. [Concomitant]
     Active Substance: FUROSEMIDE
  19. FLUTICASONE. [Concomitant]
     Active Substance: FLUTICASONE
     Route: 045
  20. PANTOPRAZOLE [Concomitant]
     Active Substance: PANTOPRAZOLE
  21. SODIUM CHLORIDE. [Concomitant]
     Active Substance: SODIUM CHLORIDE
  22. BUPRENORPHINE;NALOXONE [Concomitant]
     Active Substance: BUPRENORPHINE\NALOXONE
  23. FEXOFENADINE [Concomitant]
     Active Substance: FEXOFENADINE HYDROCHLORIDE
  24. ENSURE ACTIVE HIGH PROTEIN [Concomitant]
  25. HYDROCORTISONE. [Concomitant]
     Active Substance: HYDROCORTISONE
  26. TIZANIDINE. [Concomitant]
     Active Substance: TIZANIDINE
  27. TRIAMCINOLONE [TRIAMCINOLONE ACETONIDE] [Concomitant]
  28. AZITHROMYCIN ANHYDROUS. [Concomitant]
     Active Substance: AZITHROMYCIN ANHYDROUS
  29. SPIRONOLACTONE. [Concomitant]
     Active Substance: SPIRONOLACTONE
  30. ELIQUIS [Concomitant]
     Active Substance: APIXABAN
  31. GABAPENTIN. [Concomitant]
     Active Substance: GABAPENTIN
  32. LINEZOLID. [Concomitant]
     Active Substance: LINEZOLID
  33. PREDNISONE. [Concomitant]
     Active Substance: PREDNISONE
  34. QUETIAPINE. [Concomitant]
     Active Substance: QUETIAPINE

REACTIONS (3)
  - Ocular icterus [Unknown]
  - Blood bilirubin increased [Recovered/Resolved]
  - Hepatic enzyme increased [Unknown]

NARRATIVE: CASE EVENT DATE: 202002
